FAERS Safety Report 11916120 (Version 1)
Quarter: 2016Q1

REPORT INFORMATION
  Report Type: Spontaneous
  Country: US (occurrence: None)
  Receive Date: 20160113
  Receipt Date: 20160113
  Transmission Date: 20160526
  Serious: Yes (Other)
  Sender: FDA-Public Use
  Company Number: None

PATIENT
  Age: 54 Year
  Sex: Female
  Weight: 86.18 kg

DRUGS (2)
  1. OXYCODONE [Suspect]
     Active Substance: OXYCODONE
     Indication: ANALGESIC THERAPY
     Dosage: 1 PILL FOUR TIMES DAILY
     Dates: start: 20151214, end: 20160112
  2. SOMA [Concomitant]
     Active Substance: CARISOPRODOL

REACTIONS (6)
  - Product substitution issue [None]
  - Pruritus [None]
  - Drug ineffective [None]
  - Condition aggravated [None]
  - Hyperhidrosis [None]
  - Abdominal pain upper [None]

NARRATIVE: CASE EVENT DATE: 20151214
